FAERS Safety Report 25646534 (Version 1)
Quarter: 2025Q3

REPORT INFORMATION
  Report Type: Spontaneous
  Country: JP (occurrence: JP)
  Receive Date: 20250805
  Receipt Date: 20250805
  Transmission Date: 20251021
  Serious: Yes (Other)
  Sender: MERCK SHARP & DOHME LLC
  Company Number: JP-009507513-2315368

PATIENT
  Age: 64 Year
  Sex: Male

DRUGS (4)
  1. KEYTRUDA [Suspect]
     Active Substance: PEMBROLIZUMAB
     Indication: HER2 positive gastric cancer
  2. TRASTUZUMAB [Suspect]
     Active Substance: TRASTUZUMAB
     Indication: HER2 positive gastric cancer
  3. SELEGILINE HYDROCHLORIDE [Suspect]
     Active Substance: SELEGILINE HYDROCHLORIDE
     Indication: HER2 positive gastric cancer
  4. SELEGILINE HYDROCHLORIDE [Suspect]
     Active Substance: SELEGILINE HYDROCHLORIDE
     Indication: HER2 positive gastric cancer

REACTIONS (2)
  - Central venous catheterisation [Unknown]
  - Neutrophil count decreased [Unknown]
